FAERS Safety Report 25777223 (Version 2)
Quarter: 2025Q3

REPORT INFORMATION
  Report Type: Spontaneous
  Country: JP (occurrence: JP)
  Receive Date: 20250909
  Receipt Date: 20250920
  Transmission Date: 20251021
  Serious: Yes (Hospitalization)
  Sender: ALEXION PHARMACEUTICALS
  Company Number: JP-AstraZeneca-CH-00938939A

PATIENT
  Age: 75 Year
  Sex: Male
  Weight: 90 kg

DRUGS (3)
  1. IMFINZI [Suspect]
     Active Substance: DURVALUMAB
     Indication: Bile duct cancer
     Dosage: 1500 MILLIGRAM, Q3W
  2. GEMCITABINE [Concomitant]
     Active Substance: GEMCITABINE
     Indication: Bile duct cancer
  3. CISPLATIN [Concomitant]
     Active Substance: CISPLATIN
     Indication: Bile duct cancer

REACTIONS (2)
  - Adrenocorticotropic hormone deficiency [Recovered/Resolved]
  - Cytokine release syndrome [Recovered/Resolved]

NARRATIVE: CASE EVENT DATE: 20250821
